FAERS Safety Report 8902899 (Version 2)
Quarter: 2013Q1

REPORT INFORMATION
  Report Type: Report from Study
  Country: BE (occurrence: BE)
  Receive Date: 20121112
  Receipt Date: 20130204
  Transmission Date: 20140127
  Serious: Yes (Hospitalization)
  Sender: FDA-Public Use
  Company Number: BE-AMGEN-BELCT2010006085

PATIENT
  Age: 66 Year
  Sex: Male
  Weight: 48 kg

DRUGS (21)
  1. DARBEPOETIN ALFA [Suspect]
     Indication: ANAEMIA
     Dosage: 500 MUG/ML, Q3WK
     Dates: start: 20100809, end: 20100920
  2. CARBOPLATIN [Concomitant]
     Dosage: 600 MG, UNK
     Dates: start: 20100503, end: 20100830
  3. NAVELBINE [Concomitant]
     Dosage: 35 MG, UNK
     Dates: start: 20100503, end: 20100906
  4. SYMBICORT FORTE [Concomitant]
     Indication: BRONCHOPNEUMOPATHY
     Dosage: 320 MUG, UNK
     Dates: start: 20100623, end: 20110208
  5. SPIRIVA [Concomitant]
     Indication: BRONCHOPNEUMOPATHY
     Dosage: 18 MUG, UNK
     Dates: start: 20100623, end: 20110208
  6. DEXAMETHASONE [Concomitant]
     Indication: INFUSION RELATED REACTION
     Dosage: 10 MG, UNK
     Dates: start: 20100809, end: 20100906
  7. DEXAMETHASONE [Concomitant]
     Indication: NAUSEA
  8. TROPISETRON [Concomitant]
     Indication: ANTIEMETIC SUPPORTIVE CARE
     Dosage: 5 MG, UNK
     Dates: start: 20100809, end: 20120830
  9. ALIZAPRIDE [Concomitant]
     Indication: NAUSEA
     Dosage: 150 MG, UNK
     Dates: start: 20100809, end: 20100906
  10. APREPITANT [Concomitant]
     Indication: ANTIEMETIC SUPPORTIVE CARE
     Dosage: 80 MG, UNK
     Dates: start: 20100809, end: 20100901
  11. PARACETAMOL [Concomitant]
     Indication: RHEUMATOID ARTHRITIS
     Dosage: UNK
     Dates: start: 20100617, end: 20110208
  12. PARACETAMOL [Concomitant]
     Indication: SPINAL DISORDER
  13. TRAMADOL [Concomitant]
     Indication: PAIN
     Dosage: 200 MG, UNK
     Dates: start: 20100903, end: 20110208
  14. D-CURE [Concomitant]
     Indication: CACHEXIA
     Dosage: UNK
     Dates: start: 20100623, end: 20100906
  15. BEFACT [Concomitant]
     Indication: CACHEXIA
     Dosage: UNK
     Dates: start: 20040823, end: 20110208
  16. STEOVIT D3 [Concomitant]
     Indication: DECREASED APPETITE
     Dosage: 880 IU, UNK
     Dates: start: 20100907, end: 20110208
  17. NEXIAM [Concomitant]
     Indication: GASTRITIS
     Dosage: 40 MG, UNK
     Dates: start: 20101017, end: 20101023
  18. ZOLEDRONATE [Concomitant]
     Indication: OSTEOPOROSIS
     Dosage: 16 MG, UNK
     Dates: start: 20100906, end: 20100906
  19. FORLAX [Concomitant]
     Indication: CONSTIPATION
     Dosage: 10 G, UNK
     Dates: start: 20100623, end: 20110208
  20. SPIRONOLACTONE [Concomitant]
     Indication: OEDEMA
     Dosage: 25 MG, UNK
     Dates: start: 20040823, end: 20100812
  21. FUROSEMIDE [Concomitant]
     Indication: OEDEMA
     Dosage: 40 MG, UNK
     Dates: start: 20100623, end: 20100813

REACTIONS (1)
  - Transient ischaemic attack [Recovered/Resolved]
